FAERS Safety Report 19804165 (Version 1)
Quarter: 2021Q3

REPORT INFORMATION
  Report Type: Spontaneous
  Country: US (occurrence: US)
  Receive Date: 20210908
  Receipt Date: 20210908
  Transmission Date: 20211014
  Serious: No
  Sender: FDA-Public Use
  Company Number: US-FARMAPROD-202106-1004

PATIENT
  Sex: Male

DRUGS (9)
  1. DUPIXENT [Concomitant]
     Active Substance: DUPILUMAB
     Dosage: 200 MG/1.14 SYRINGE
  2. ERYTHROMYCIN. [Concomitant]
     Active Substance: ERYTHROMYCIN
  3. ZIRGAN [Concomitant]
     Active Substance: GANCICLOVIR
  4. OXERVATE [Suspect]
     Active Substance: CENEGERMIN-BKBJ
     Indication: ULCERATIVE KERATITIS
  5. ZYLET [Concomitant]
     Active Substance: LOTEPREDNOL ETABONATE\TOBRAMYCIN
     Dosage: 0.3?0.5% DROPS SUSPENSION
  6. OXERVATE [Suspect]
     Active Substance: CENEGERMIN-BKBJ
     Indication: NEUROTROPHIC KERATOPATHY
     Route: 047
     Dates: start: 20210611
  7. VIGAMOX [Concomitant]
     Active Substance: MOXIFLOXACIN HYDROCHLORIDE
  8. ALBUTEROL SULFATE. [Concomitant]
     Active Substance: ALBUTEROL SULFATE
  9. VALTREX [Concomitant]
     Active Substance: VALACYCLOVIR HYDROCHLORIDE

REACTIONS (2)
  - Ocular discomfort [Not Recovered/Not Resolved]
  - Eye pain [Not Recovered/Not Resolved]
